FAERS Safety Report 9289299 (Version 3)
Quarter: 2014Q2

REPORT INFORMATION
  Report Type: Spontaneous
  Country: IT (occurrence: None)
  Receive Date: 20130510
  Receipt Date: 20140404
  Transmission Date: 20141212
  Serious: Yes (Hospitalization)
  Sender: FDA-Public Use
  Company Number: AUR-APL-2013-03848

PATIENT
  Age: 43 Year
  Sex: Female

DRUGS (3)
  1. LAMOTRIGINE [Suspect]
     Indication: PRODUCT USED FOR UNKNOWN INDICATION
     Route: 048
     Dates: start: 20130331, end: 20130331
  2. LAMOTRIGINE [Suspect]
     Route: 048
     Dates: start: 20130331, end: 20130331
  3. SEROQUEL [Suspect]
     Indication: PRODUCT USED FOR UNKNOWN INDICATION
     Route: 048
     Dates: start: 20130331, end: 20130331

REACTIONS (7)
  - Vomiting [None]
  - Psychomotor hyperactivity [None]
  - Somnolence [None]
  - Drug abuse [None]
  - Sopor [None]
  - Overdose [None]
  - Faecal incontinence [None]
